FAERS Safety Report 9101815 (Version 2)
Quarter: 2013Q1

REPORT INFORMATION
  Report Type: Report from Study
  Country: JP (occurrence: JP)
  Receive Date: 20130218
  Receipt Date: 20130301
  Transmission Date: 20140127
  Serious: Yes (Other)
  Sender: FDA-Public Use
  Company Number: JP-ASTELLAS-2013JP001746

PATIENT
  Age: 81 Year
  Sex: Female

DRUGS (10)
  1. SOLIFENACIN [Suspect]
     Indication: HYPERTONIC BLADDER
     Dosage: 5 MG, UID/QD
     Route: 048
     Dates: start: 20111212
  2. MIRABEGRON [Suspect]
     Indication: HYPERTONIC BLADDER
     Dosage: 50 MG, UID/QD
     Route: 048
     Dates: start: 20121227
  3. MIRABEGRON [Suspect]
     Dosage: 25 MG, UID/QD
     Route: 048
     Dates: start: 20121108, end: 20121226
  4. THYRADIN S [Suspect]
     Indication: HYPOTHYROIDISM
     Dosage: 75 UG, UNKNOWN/D
     Route: 048
  5. ATORVASTATIN [Concomitant]
     Indication: HYPERLIPIDAEMIA
     Dosage: 5 MG, UNKNOWN/D
     Route: 048
  6. TRANDOLAPRIL [Concomitant]
     Indication: HYPERTENSION
     Dosage: 1 MG, UNKNOWN/D
     Route: 048
  7. AMLODIPINE                         /00972402/ [Concomitant]
     Indication: HYPERTENSION
     Dosage: 2.5 MG, UNKNOWN/D
     Route: 048
  8. TRYTHMEN [Concomitant]
     Indication: HYPERTENSION
     Dosage: 1 MG, UNKNOWN/D
     Route: 048
  9. APORASNON [Concomitant]
     Indication: HYPERTENSION
     Dosage: 12.5 MG, UNKNOWN/D
     Route: 048
  10. BACCIDAL [Concomitant]
     Indication: URINE ABNORMALITY
     Dosage: 300 MG, UNKNOWN/D
     Route: 048
     Dates: start: 20121109, end: 20121109

REACTIONS (1)
  - Atrial fibrillation [Recovered/Resolved]
